FAERS Safety Report 11270305 (Version 2)
Quarter: 2015Q4

REPORT INFORMATION
  Report Type: Report from Study
  Country: US (occurrence: US)
  Receive Date: 20150714
  Receipt Date: 20151218
  Transmission Date: 20160304
  Serious: Yes (Other)
  Sender: FDA-Public Use
  Company Number: US-ABBVIE-15P-163-1424100-00

PATIENT
  Age: 30 Year
  Sex: Female

DRUGS (4)
  1. REYATAZ [Suspect]
     Active Substance: ATAZANAVIR SULFATE
     Indication: ANTIVIRAL TREATMENT
     Route: 048
     Dates: start: 20150414
  2. NORVIR [Suspect]
     Active Substance: RITONAVIR
     Indication: ANTIVIRAL TREATMENT
     Route: 048
     Dates: start: 20150414
  3. TRUVADA [Suspect]
     Active Substance: EMTRICITABINE\TENOFOVIR DISOPROXIL FUMARATE
     Indication: ANTIVIRAL TREATMENT
     Route: 048
     Dates: start: 20150414
  4. TIVICAY [Suspect]
     Active Substance: DOLUTEGRAVIR SODIUM
     Indication: ANTIVIRAL TREATMENT
     Route: 048
     Dates: start: 20150414

REACTIONS (2)
  - Abortion induced [Unknown]
  - Exposure during pregnancy [Unknown]

NARRATIVE: CASE EVENT DATE: 20150424
